FAERS Safety Report 15231201 (Version 3)
Quarter: 2019Q1

REPORT INFORMATION
  Report Type: Spontaneous
  Country: GB (occurrence: GB)
  Receive Date: 20180802
  Receipt Date: 20190115
  Transmission Date: 20190417
  Serious: Yes (Other)
  Sender: FDA-Public Use
  Company Number: PHHY2018GB060332

PATIENT
  Age: 21 Year
  Sex: Female

DRUGS (5)
  1. AZITHROMYCIN ANHYDROUS. [Suspect]
     Active Substance: AZITHROMYCIN ANHYDROUS
     Indication: ANTIINFLAMMATORY THERAPY
     Dosage: UNKNOWN
     Route: 065
  2. TOBRAMYCIN. [Interacting]
     Active Substance: TOBRAMYCIN
     Dosage: 120 MG, TID
     Route: 042
     Dates: start: 200311
  3. TOBRAMYCIN. [Interacting]
     Active Substance: TOBRAMYCIN
     Indication: PSEUDOMONAS INFECTION
     Dosage: 8 MG/KG, QD
     Route: 042
     Dates: start: 200311
  4. IBUPROFEN. [Interacting]
     Active Substance: IBUPROFEN
     Indication: PRODUCT USED FOR UNKNOWN INDICATION
     Dosage: UNK
     Route: 065
  5. COLOMYCIN (COLISTIN) [Interacting]
     Active Substance: COLISTIN SULFATE
     Indication: PSEUDOMONAS INFECTION
     Dosage: 2 MIU, TID
     Route: 042
     Dates: start: 200311

REACTIONS (13)
  - Drug interaction [Recovered/Resolved]
  - Off label use [Unknown]
  - Blood urea increased [Recovered/Resolved]
  - Acute kidney injury [Recovered/Resolved]
  - Weight decreased [Recovered/Resolved]
  - Vomiting [Recovered/Resolved]
  - Arthropathy [Recovered/Resolved]
  - Blood creatinine increased [Recovered/Resolved]
  - Creatinine renal clearance decreased [Recovered/Resolved]
  - Influenza like illness [Recovered/Resolved]
  - Hypophagia [Recovered/Resolved]
  - Polyarthritis [Recovered/Resolved]
  - Dyspepsia [Recovered/Resolved]

NARRATIVE: CASE EVENT DATE: 2003
